FAERS Safety Report 23569917 (Version 1)
Quarter: 2024Q1

REPORT INFORMATION
  Report Type: Spontaneous
  Country: US (occurrence: US)
  Receive Date: 20240227
  Receipt Date: 20240227
  Transmission Date: 20240410
  Serious: No
  Sender: FDA-Public Use
  Company Number: US-LGM Pharma Solutions, LLC-2153694

PATIENT
  Age: 12 Year
  Sex: Male

DRUGS (2)
  1. CHENODAL [Suspect]
     Active Substance: CHENODIOL
     Route: 048
     Dates: start: 20230425
  2. ATORVASTATIN [Concomitant]
     Active Substance: ATORVASTATIN
     Route: 065

REACTIONS (2)
  - Nasopharyngitis [Unknown]
  - Vomiting [Unknown]
